FAERS Safety Report 8919772 (Version 2)
Quarter: 2013Q1

REPORT INFORMATION
  Report Type: Spontaneous
  Country: US (occurrence: US)
  Receive Date: 20121121
  Receipt Date: 20130111
  Transmission Date: 20140127
  Serious: Yes (Hospitalization)
  Sender: FDA-Public Use
  Company Number: US-BAYER-2012-119907

PATIENT
  Age: 27 Year
  Sex: Female
  Weight: 77 kg

DRUGS (10)
  1. YAZ [Suspect]
     Indication: CONTRACEPTION
     Dosage: UNK
     Dates: start: 20020101, end: 2011
  2. YAZ [Suspect]
     Indication: ACNE
  3. YAZ [Suspect]
     Indication: PREMENSTRUAL SYNDROME
  4. YASMIN [Suspect]
     Indication: CONTRACEPTION
     Dosage: UNK
     Dates: start: 20020101, end: 2011
  5. YASMIN [Suspect]
     Indication: ACNE
  6. YASMIN [Suspect]
     Indication: PREMENSTRUAL SYNDROME
  7. OCELLA [Suspect]
     Indication: ACNE
     Dosage: UNK
     Dates: start: 2002, end: 2011
  8. OCELLA [Suspect]
     Indication: CONTRACEPTION
  9. OCELLA [Suspect]
     Indication: PREMENSTRUAL SYNDROME
  10. ADVIL [Concomitant]
     Dosage: OCCASIONALLY

REACTIONS (13)
  - Eye haemorrhage [None]
  - Retinal vascular thrombosis [None]
  - Thrombosis [None]
  - Injury [None]
  - Pain [None]
  - General physical health deterioration [None]
  - Anxiety [None]
  - Anhedonia [None]
  - Emotional distress [None]
  - Pain [None]
  - Blindness [None]
  - Vision blurred [None]
  - Vitreous floaters [None]
